FAERS Safety Report 7424291-8 (Version None)
Quarter: 2011Q2

REPORT INFORMATION
  Report Type: 
  Country: None (occurrence: None)
  Receive Date: 20110419
  Receipt Date: 20110412
  Transmission Date: 20111010
  Serious: Yes (Hospitalization, Other)
  Sender: FDA-Public Use
  Company Number: JP-PFIZER INC-2010157272

PATIENT
  Age: 89 Year
  Sex: Female
  Weight: 40 kg

DRUGS (16)
  1. FAMOTIDINE [Concomitant]
     Dosage: 20 MG, 1X/DAY
     Route: 048
  2. PURSENNID [Concomitant]
     Indication: CONSTIPATION
     Dosage: 2 UNK, 1X/DAY
     Route: 048
  3. DISOPYRAMIDE PHOSPHATE [Concomitant]
     Dosage: 100 MG, 3X/DAY
     Route: 048
  4. ABILIT [Concomitant]
     Dosage: 50 MG, 3X/DAY
     Route: 048
  5. ISALON [Concomitant]
     Dosage: 100 MG, 3X/DAY
     Route: 048
  6. BESACOLIN [Concomitant]
     Indication: DYSURIA
     Dosage: 0.4 MG, 3X/DAY
     Route: 048
  7. CARBOCAIN [Concomitant]
     Dosage: 10 ML, SINGLE
     Route: 008
     Dates: start: 20101116, end: 20101116
  8. ALFACALCIDOL [Concomitant]
     Dosage: 1 UG, 1X/DAY
     Route: 048
  9. UBRETID [Concomitant]
     Indication: DYSURIA
     Dosage: 5 MG, 1X/DAY
     Route: 048
  10. AMARYL [Concomitant]
     Indication: DIABETES MELLITUS
     Dosage: 1 MG, 1X/DAY
     Route: 048
  11. LOXOPROFEN SODIUM [Concomitant]
     Dosage: 60 MG, 2X/DAY
     Route: 048
  12. LYRICA [Suspect]
     Indication: PAIN IN EXTREMITY
     Dosage: 50 MG, 1X/DAY
     Route: 048
     Dates: start: 20101115, end: 20101121
  13. NEUQUINON [Concomitant]
     Dosage: 10 MG, 3X/DAY
     Route: 048
  14. EBRANTIL [Concomitant]
     Indication: DYSURIA
     Dosage: 30 MG, 2X/DAY
     Route: 048
  15. FELBINAC [Concomitant]
     Dosage: 1 UNK, 1X/DAY
     Route: 062
     Dates: start: 20101006
  16. DEXAMETHASONE SODIUM PHOSPHATE [Concomitant]
     Dosage: 6.6 MG, SINGLE
     Route: 008
     Dates: start: 20101116, end: 20101116

REACTIONS (2)
  - ASTHENIA [None]
  - ALTERED STATE OF CONSCIOUSNESS [None]
